FAERS Safety Report 6473179-8 (Version None)
Quarter: 2009Q4

REPORT INFORMATION
  Report Type: 
  Country: None (occurrence: None)
  Receive Date: 20091204
  Receipt Date: 20090505
  Transmission Date: 20100525
  Serious: Yes (Hospitalization)
  Sender: FDA-Public Use
  Company Number: US-ELI_LILLY_AND_COMPANY-US200807000250

PATIENT
  Sex: Female

DRUGS (6)
  1. HUMALOG [Suspect]
     Indication: GESTATIONAL DIABETES
     Dosage: 5 U, EACH MORNING
     Dates: start: 20080606
  2. HUMALOG [Suspect]
     Dosage: 5 U, EACH EVENING
     Dates: start: 20080606
  3. HUMULIN N [Suspect]
     Dosage: UNK, UNK
     Dates: start: 20080525, end: 20080601
  4. SYNTHROID [Concomitant]
     Indication: THYROID DISORDER
     Dosage: 1.175 MG, UNK
     Dates: start: 19891001
  5. PRENATAL VITAMINS /01549301/ [Concomitant]
     Dosage: UNK, DAILY (1/D)
     Dates: start: 20060101
  6. CALTRATE [Concomitant]
     Dates: start: 20080801

REACTIONS (11)
  - BED REST [None]
  - BLOOD GLUCOSE INCREASED [None]
  - DRUG EXPOSURE DURING PREGNANCY [None]
  - FEELING COLD [None]
  - HYPOGLYCAEMIA [None]
  - INFUSION SITE ERYTHEMA [None]
  - INFUSION SITE INFECTION [None]
  - NIGHT SWEATS [None]
  - PREMATURE LABOUR [None]
  - PROTEIN URINE PRESENT [None]
  - SHORTENED CERVIX [None]
